FAERS Safety Report 7090643-1 (Version None)
Quarter: 2010Q4

REPORT INFORMATION
  Report Type: 
  Country: None (occurrence: None)
  Receive Date: 20101109
  Receipt Date: 20091009
  Transmission Date: 20110411
  Serious: No
  Sender: FDA-Public Use
  Company Number: US-KINGPHARMUSA00001-K200901261

PATIENT
  Sex: Male
  Weight: 79.365 kg

DRUGS (5)
  1. FLECTOR [Suspect]
     Indication: SCIATICA
     Dosage: 1 PATCH, QD
     Route: 061
     Dates: start: 20091008, end: 20091008
  2. FLECTOR [Suspect]
     Dosage: 1 PATCH, BID
     Route: 061
     Dates: start: 20091010
  3. ZOLOFT [Concomitant]
     Indication: ANXIETY
     Dosage: 25 MG, QD
  4. CLARINEX [Concomitant]
     Indication: EAR CONGESTION
     Dosage: UNK
  5. ZETIA [Concomitant]
     Indication: BLOOD CHOLESTEROL
     Dosage: UNK

REACTIONS (3)
  - ANXIETY [None]
  - ERYTHEMA [None]
  - FEELING HOT [None]
